FAERS Safety Report 6838831-0 (Version None)
Quarter: 2010Q3

REPORT INFORMATION
  Report Type: 
  Country: None (occurrence: None)
  Receive Date: 20100713
  Receipt Date: 20070714
  Transmission Date: 20110219
  Serious: No
  Sender: FDA-Public Use
  Company Number: US-PFIZER INC-2007045336

PATIENT
  Sex: Female
  Weight: 104.5 kg

DRUGS (4)
  1. CHANTIX [Suspect]
     Indication: SMOKING CESSATION THERAPY
     Dates: start: 20070517
  2. CELEBREX [Concomitant]
  3. ATACAND HCT [Concomitant]
     Indication: HYPERTENSION
  4. NEXIUM [Concomitant]

REACTIONS (2)
  - FLUID RETENTION [None]
  - SWELLING [None]
